FAERS Safety Report 4545069-9 (Version None)
Quarter: 2004Q4

REPORT INFORMATION
  Report Type: 
  Country: None (occurrence: None)
  Receive Date: 20041222
  Receipt Date: 20041027
  Transmission Date: 20050328
  Serious: Yes (Disabling)
  Sender: FDA-Public Use
  Company Number: US_0410106413

PATIENT
  Age: 45 Year
  Sex: Male
  Weight: 105 kg

DRUGS (6)
  1. HUMALOG [Suspect]
     Indication: DIABETES MELLITUS
     Dosage: 30 U/2 DAY
     Dates: start: 20010101
  2. HUMULIN L [Suspect]
     Dates: start: 19870101
  3. HUMULIN N [Suspect]
     Indication: DIABETES MELLITUS
     Dates: end: 20010101
  4. HUMULIN R [Suspect]
     Indication: DIABETES MELLITUS
     Dates: end: 20010101
  5. AVANDIA [Concomitant]
  6. GLUCOPHAGE [Concomitant]

REACTIONS (3)
  - DIABETIC RETINOPATHY [None]
  - DYSSTASIA [None]
  - VISUAL ACUITY REDUCED [None]
